FAERS Safety Report 5294242-3 (Version None)
Quarter: 2007Q2

REPORT INFORMATION
  Report Type: 
  Country: None (occurrence: None)
  Receive Date: 20070409
  Receipt Date: 20070409
  Transmission Date: 20071010
  Serious: Yes (Other)
  Sender: FDA-Public Use
  Company Number: None

PATIENT
  Age: 57 Year
  Sex: Male
  Weight: 181.4388 kg

DRUGS (19)
  1. BUPROPION HCL [Suspect]
     Indication: BIPOLAR I DISORDER
     Dosage: 300MG 1 DAILY PO
     Route: 048
     Dates: start: 20070301, end: 20070406
  2. LAMICTAL [Concomitant]
  3. GLYBURIDE [Concomitant]
  4. METFORMIN HCL [Concomitant]
  5. METOPROLOL SUCCINATE [Concomitant]
  6. LISINOPRIL [Concomitant]
  7. HYDROCHLOROTHIAZIDE [Concomitant]
  8. FUROSEMIDE [Concomitant]
  9. KLOR-CON [Concomitant]
  10. DOCUSATE SODIUM [Concomitant]
  11. TOPAMAX [Concomitant]
  12. CLOPIDOGREL [Concomitant]
  13. LORATADINE [Concomitant]
  14. LIPITOR [Concomitant]
  15. LUNESTA [Concomitant]
  16. LANTUS [Concomitant]
  17. HUMALOG [Concomitant]
  18. SYMLIN [Concomitant]
  19. WELLBUTRIN XL [Suspect]

REACTIONS (6)
  - DEPRESSION [None]
  - DRUG INEFFECTIVE [None]
  - FEELING ABNORMAL [None]
  - PHARMACEUTICAL PRODUCT COMPLAINT [None]
  - SOMNOLENCE [None]
  - THERAPEUTIC RESPONSE UNEXPECTED WITH DRUG SUBSTITUTION [None]
